FAERS Safety Report 9197448 (Version 1)
Quarter: 2013Q1

REPORT INFORMATION
  Report Type: Spontaneous
  Country: US (occurrence: None)
  Receive Date: 20120709
  Receipt Date: 20120709
  Transmission Date: 20140127
  Serious: Yes (Other)
  Sender: FDA-Public Use
  Company Number: PHHY2011US39985

PATIENT
  Age: 72 Year
  Sex: Male
  Weight: 96.1 kg

DRUGS (9)
  1. GLEEVEC (IMATINIB) [Suspect]
     Dosage: 1 DF, QD, ORAL
     Route: 048
  2. COREG (CARVEDILOL) [Concomitant]
  3. LASIX  (FUROSEMIDE) [Concomitant]
  4. COUMADIN (WARFARIN SODIUM) [Concomitant]
  5. COD-LIVER OIL (COD-LIVER OIL) [Concomitant]
  6. ALLOPURINOL [Concomitant]
  7. ASPIRIN (ACETYLSALICYLIC ACID) [Concomitant]
  8. FLAXSEED OIL (LINUM USITATISSIMUM SEED OIL) [Concomitant]
  9. MULTIVITAMINS W /MINERALS NOS, VITAMINES NOS) [Concomitant]

REACTIONS (3)
  - Renal failure [None]
  - Asthenia [None]
  - Fall [None]
